FAERS Safety Report 19720618 (Version 1)
Quarter: 2021Q3

REPORT INFORMATION
  Report Type: Spontaneous
  Country: US (occurrence: US)
  Receive Date: 20210819
  Receipt Date: 20210819
  Transmission Date: 20211014
  Serious: No
  Sender: FDA-Public Use
  Company Number: US-CONCORD BIOTECH LIMITED-CBL202105-000228

PATIENT

DRUGS (1)
  1. MYCOPHENOLATE MOFETIL 500 MG TABLET [Suspect]
     Active Substance: MYCOPHENOLATE MOFETIL
     Route: 048

REACTIONS (1)
  - Expired product administered [Unknown]
